FAERS Safety Report 4902141-9 (Version None)
Quarter: 2006Q1

REPORT INFORMATION
  Report Type: 
  Country: None (occurrence: None)
  Receive Date: 20060206
  Receipt Date: 20060125
  Transmission Date: 20060701
  Serious: Yes (Hospitalization)
  Sender: FDA-Public Use
  Company Number: JP-JNJFOC-20051101271

PATIENT
  Sex: Female
  Weight: 63 kg

DRUGS (28)
  1. REMICADE [Suspect]
     Route: 042
  2. REMICADE [Suspect]
     Route: 042
  3. REMICADE [Suspect]
     Route: 042
  4. REMICADE [Suspect]
     Route: 042
  5. REMICADE [Suspect]
     Route: 042
  6. REMICADE [Suspect]
     Route: 042
  7. REMICADE [Suspect]
     Route: 042
  8. REMICADE [Suspect]
     Route: 042
  9. REMICADE [Suspect]
     Route: 042
  10. REMICADE [Suspect]
     Route: 042
  11. REMICADE [Suspect]
     Dosage: 10 INFUSIONS ON UNSPECIFIED DATES
     Route: 042
  12. REMICADE [Suspect]
     Route: 042
  13. REMICADE [Suspect]
     Route: 042
  14. REMICADE [Suspect]
     Route: 042
  15. REMICADE [Suspect]
     Route: 042
  16. REMICADE [Suspect]
     Indication: RHEUMATOID ARTHRITIS
     Route: 042
  17. RHEUMATREX [Suspect]
     Indication: RHEUMATOID ARTHRITIS
     Route: 048
  18. PREDNISOLONE [Suspect]
     Indication: RHEUMATOID ARTHRITIS
     Route: 048
  19. VOLTAREN [Concomitant]
     Indication: RHEUMATOID ARTHRITIS
     Route: 048
  20. NORVASC [Concomitant]
     Route: 048
  21. DIOVAN [Concomitant]
     Route: 048
  22. ALDACTONE [Concomitant]
     Route: 048
  23. ALFAROL [Concomitant]
     Route: 048
  24. TAKEPRON [Concomitant]
     Route: 048
  25. CYTOTEC [Concomitant]
     Route: 048
  26. SANWA KEISHAKU-TIMO-TO [Concomitant]
     Route: 048
  27. SHUJI-BUSHI [Concomitant]
     Route: 048
  28. ADRENAL HORMONE PREPARATIONS [Concomitant]
     Indication: RHEUMATOID ARTHRITIS
     Route: 048

REACTIONS (8)
  - BACK PAIN [None]
  - BACTERIAL INFECTION [None]
  - CANDIDIASIS [None]
  - MUSCLE ABSCESS [None]
  - SEPSIS [None]
  - STAPHYLOCOCCAL INFECTION [None]
  - SURGERY [None]
  - THERAPY NON-RESPONDER [None]
